FAERS Safety Report 7354717-X (Version None)
Quarter: 2011Q1

REPORT INFORMATION
  Report Type: 
  Country: None (occurrence: None)
  Receive Date: 20110304
  Receipt Date: 20090826
  Transmission Date: 20110831
  Serious: Yes (Other)
  Sender: FDA-Public Use
  Company Number: UK-2009-00285

PATIENT
  Age: 53 Year
  Sex: Male
  Weight: 86 kg

DRUGS (4)
  1. DICLOFENAC [Concomitant]
  2. RANITIDINE [Concomitant]
  3. TAMSULOSIN [Concomitant]
  4. SIMVASTATIN [Suspect]
     Indication: TYPE IIA HYPERLIPIDAEMIA
     Dosage: 80 MG (80 MG) ORAL
     Route: 048
     Dates: start: 20090328, end: 20090726

REACTIONS (3)
  - NO THERAPEUTIC RESPONSE [None]
  - IMPAIRED WORK ABILITY [None]
  - GOUT [None]
